FAERS Safety Report 9369805 (Version 6)
Quarter: 2013Q4

REPORT INFORMATION
  Report Type: Spontaneous
  Country: US (occurrence: US)
  Receive Date: 20130626
  Receipt Date: 20131119
  Transmission Date: 20140711
  Serious: Yes (Other)
  Sender: FDA-Public Use
  Company Number: US-PFIZER INC-2013189455

PATIENT
  Age: 48 Year
  Sex: Female
  Weight: 104 kg

DRUGS (15)
  1. NEURONTIN [Suspect]
     Indication: NEUROPATHY PERIPHERAL
     Dosage: 600 MG, 3X/DAY
     Route: 048
     Dates: start: 1998
  2. NEURONTIN [Suspect]
     Indication: DIABETIC NEUROPATHY
     Dosage: 300 MG, 3X/DAY
     Route: 048
     Dates: start: 200408, end: 201305
  3. LYRICA [Concomitant]
     Dosage: UNK
  4. LISINOPRIL [Concomitant]
     Indication: HYPERTENSION
     Dosage: 20 MG DAILY
  5. LANTUS [Concomitant]
     Indication: DIABETES MELLITUS
     Dosage: 50 IU, 1X/DAY (50 UNITS QHS)
     Dates: start: 201102
  6. HUMULIN 70/30 [Concomitant]
     Indication: DIABETES MELLITUS
     Dosage: 30 IU, 1X/DAY (30 UNITS QAM)
     Dates: start: 201301
  7. HUMALOG [Concomitant]
     Indication: DIABETES MELLITUS
     Dosage: SLIDING SCALE, AS NEEDED
     Dates: start: 2004
  8. TRICOR [Concomitant]
     Dosage: 145 (UNK), UNK
     Dates: start: 2004
  9. LIPITOR [Concomitant]
     Dosage: 40 UNK, UNK
     Dates: start: 2008
  10. FUROSEMIDE [Concomitant]
     Dosage: 40 UNK, UNK
  11. SYNTHROID [Concomitant]
     Indication: HYPERTHYROIDISM
     Dosage: 112 UG, 1X/DAY
     Dates: start: 2004
  12. CYMBALTA [Concomitant]
     Indication: DEPRESSION
     Dosage: 30 MG, 2X/DAY
     Dates: start: 201106
  13. CYMBALTA [Concomitant]
     Indication: NEUROPATHY PERIPHERAL
  14. AVANDIA [Concomitant]
     Indication: TYPE 2 DIABETES MELLITUS
     Dosage: 8 MG, 1X/DAY
     Dates: start: 200408, end: 2007
  15. HUMULIN [Concomitant]
     Dosage: 100 IU, (40 UNIT AM, 60 UNIT PM)
     Dates: start: 2004, end: 201301

REACTIONS (12)
  - Diabetes mellitus [Unknown]
  - Blood triglycerides increased [Unknown]
  - Blood cholesterol increased [Unknown]
  - Agitation [Unknown]
  - Depression [Unknown]
  - Hypoaesthesia [Unknown]
  - Paraesthesia [Unknown]
  - Pain in extremity [Unknown]
  - Burning sensation [Unknown]
  - Nerve injury [Unknown]
  - Feeling abnormal [Unknown]
  - Drug ineffective [Unknown]
